FAERS Safety Report 4962232-3 (Version None)
Quarter: 2006Q2

REPORT INFORMATION
  Report Type: 
  Country: None (occurrence: None)
  Receive Date: 20060404
  Receipt Date: 20060327
  Transmission Date: 20061013
  Serious: Yes (Other)
  Sender: FDA-Public Use
  Company Number: PHBS2006JP04685

PATIENT
  Sex: Male

DRUGS (2)
  1. HEPARIN [Suspect]
  2. DIOVAN [Suspect]
     Dosage: 80 MG/DAY
     Route: 048

REACTIONS (1)
  - IDIOPATHIC THROMBOCYTOPENIC PURPURA [None]
